FAERS Safety Report 19498576 (Version 1)
Quarter: 2021Q3

REPORT INFORMATION
  Report Type: Spontaneous
  Country: GB (occurrence: GB)
  Receive Date: 20210706
  Receipt Date: 20210706
  Transmission Date: 20211014
  Serious: Yes (Other)
  Sender: FDA-Public Use
  Company Number: GB-PERRIGO-21GB008736

PATIENT

DRUGS (5)
  1. IBUPROFEN. [Suspect]
     Active Substance: IBUPROFEN
     Indication: IMMUNISATION
     Route: 065
  2. VACCINES [Suspect]
     Active Substance: UNSPECIFIED INGREDIENT
     Dosage: DOSE 1
     Dates: start: 20210503
  3. VACCINES [Suspect]
     Active Substance: UNSPECIFIED INGREDIENT
     Dosage: DOSE 2
     Dates: start: 20210615
  4. CO?DYDRAMOL [Concomitant]
     Active Substance: ACETAMINOPHEN\DIHYDROCODEINE
  5. NAPROXEN. [Concomitant]
     Active Substance: NAPROXEN

REACTIONS (5)
  - Pyrexia [Not Recovered/Not Resolved]
  - Myositis [Recovering/Resolving]
  - Fatigue [Not Recovered/Not Resolved]
  - Myalgia [Not Recovered/Not Resolved]
  - Headache [Not Recovered/Not Resolved]

NARRATIVE: CASE EVENT DATE: 20210616
